FAERS Safety Report 14270870 (Version 1)
Quarter: 2017Q4

REPORT INFORMATION
  Report Type: Report from Study
  Country: JP (occurrence: JP)
  Receive Date: 20171211
  Receipt Date: 20171211
  Transmission Date: 20180321
  Serious: Yes (Hospitalization)
  Sender: FDA-Public Use
  Company Number: JP-OTSUKA-JP-2012-16092

PATIENT
  Age: 60 Year
  Sex: Male

DRUGS (18)
  1. ARIPIPRAZOLE. [Suspect]
     Active Substance: ARIPIPRAZOLE
     Dosage: 12 MG, QD
     Route: 048
     Dates: start: 20111231, end: 20120217
  2. IRBETAN [Concomitant]
     Active Substance: IRBESARTAN
     Dosage: 50 MG, QD
     Route: 048
     Dates: start: 20100602
  3. ARIPIPRAZOLE. [Suspect]
     Active Substance: ARIPIPRAZOLE
     Dosage: 18 MG, QD
     Route: 048
     Dates: start: 20111210, end: 20111216
  4. CYSVON [Concomitant]
     Active Substance: NITRAZEPAM
     Indication: SCHIZOPHRENIA
     Dosage: 5 MG, QD
     Route: 048
     Dates: start: 20100210
  5. LENDEM [Concomitant]
     Indication: SCHIZOPHRENIA
     Dosage: 0.25 MG, QD
     Route: 048
     Dates: start: 20100210
  6. IRBESARTAN. [Concomitant]
     Active Substance: IRBESARTAN
     Dosage: TAB
     Dates: start: 20100602
  7. ARIPIPRAZOLE. [Suspect]
     Active Substance: ARIPIPRAZOLE
     Dosage: 12 MG, QD
     Route: 048
     Dates: start: 20111130, end: 20111209
  8. AKINETON [Concomitant]
     Active Substance: BIPERIDEN HYDROCHLORIDE
     Indication: DYSTONIA
     Dosage: 2 MG, QD
     Route: 048
     Dates: start: 20100210
  9. ARIPIPRAZOLE. [Suspect]
     Active Substance: ARIPIPRAZOLE
     Indication: SCHIZOPHRENIA
     Dosage: 6 MG, QD
     Route: 048
     Dates: start: 20111120, end: 20111129
  10. ARIPIPRAZOLE. [Suspect]
     Active Substance: ARIPIPRAZOLE
     Dosage: 9 MG, QD
     Route: 048
     Dates: start: 20120218, end: 20120822
  11. ARIPIPRAZOLE. [Suspect]
     Active Substance: ARIPIPRAZOLE
     Dosage: 24 MG, QD
     Route: 048
     Dates: start: 20111217, end: 20111230
  12. CHLORPROMAZINE AND PREPARATIONS [Concomitant]
     Indication: SCHIZOPHRENIA
     Dosage: 12.5 MG, QD
     Route: 048
     Dates: start: 20100210
  13. CHLORPROMAZINE. [Concomitant]
     Active Substance: CHLORPROMAZINE
     Dosage: CHLORPROMAZINE AND PREPARATIONS TAB
     Dates: start: 20100210
  14. ABILIFY [Suspect]
     Active Substance: ARIPIPRAZOLE
     Indication: SCHIZOPHRENIA
     Dosage: 6MG:20NV11-29NV;10  12MG:30NV-09DC;10,31DC-17FB12;49  18MG:10-16DC;7  24MG:17-30DC;14  9MG:18FB-22AG
     Route: 048
     Dates: start: 20111120
  15. LEXOTAN [Concomitant]
     Active Substance: BROMAZEPAM
     Indication: SCHIZOPHRENIA
     Dosage: 10 MG, QD
     Route: 048
     Dates: start: 20100210
  16. BASEN [Concomitant]
     Active Substance: VOGLIBOSE
     Dosage: 0.6 MG, QD
     Route: 048
     Dates: start: 20100210
  17. ALOSENN [Concomitant]
     Active Substance: SENNA LEAF
     Dosage: 1 G, QD
     Route: 048
     Dates: start: 20100210
  18. SENNA [Concomitant]
     Active Substance: SENNA LEAF\SENNOSIDES\SENNOSIDES A AND B
     Dosage: GRANULES
     Dates: start: 20100210

REACTIONS (1)
  - Dystonia [Recovering/Resolving]

NARRATIVE: CASE EVENT DATE: 20111231
